FAERS Safety Report 5657170-7 (Version None)
Quarter: 2008Q1

REPORT INFORMATION
  Report Type: 
  Country: None (occurrence: None)
  Receive Date: 20080310
  Receipt Date: 20080226
  Transmission Date: 20080703
  Serious: Yes (Other)
  Sender: FDA-Public Use
  Company Number: DE-AMGEN-UK259742

PATIENT
  Sex: Female

DRUGS (5)
  1. VECTIBIX [Suspect]
     Indication: COLORECTAL CANCER
     Route: 042
     Dates: start: 20060426, end: 20071219
  2. DEXAMETHASONE TAB [Concomitant]
     Route: 042
     Dates: start: 20071219, end: 20071219
  3. FENISTIL [Concomitant]
     Route: 042
     Dates: start: 20071219, end: 20071219
  4. ACETAMINOPHEN [Concomitant]
     Route: 048
     Dates: start: 20071219, end: 20071219
  5. GRANISETRON [Concomitant]
     Route: 042
     Dates: start: 20071219, end: 20071219

REACTIONS (3)
  - DERMATITIS ACNEIFORM [None]
  - SKIN NECROSIS [None]
  - SKIN TOXICITY [None]
